FAERS Safety Report 13929081 (Version 1)
Quarter: 2017Q3

REPORT INFORMATION
  Report Type: Spontaneous
  Country: US (occurrence: US)
  Receive Date: 20170901
  Receipt Date: 20170901
  Transmission Date: 20171127
  Serious: Yes (Life-Threatening, Disabling, Other)
  Sender: FDA-Public Use
  Company Number: None

PATIENT
  Age: 61 Year
  Sex: Female
  Weight: 76.5 kg

DRUGS (6)
  1. LEVOTHYROXINE. [Concomitant]
     Active Substance: LEVOTHYROXINE
  2. L METHYL FOLATE [Concomitant]
  3. VITAMIN C [Concomitant]
     Active Substance: ASCORBIC ACID
  4. MAGNESIUM [Concomitant]
     Active Substance: MAGNESIUM
  5. VITAMIN B COMPLEX [Concomitant]
     Active Substance: CYANOCOBALAMIN\DEXPANTHENOL\NIACINAMIDE\PYRIDOXINE HYDROCHLORIDE\RIBOFLAVIN 5^-PHOSPHATE SODIUM\THIAMINE HYDROCHLORIDE\VITAMIN B COMPLEX
  6. CLONAZEPAM. [Suspect]
     Active Substance: CLONAZEPAM
     Indication: PRODUCT USED FOR UNKNOWN INDICATION
     Route: 048

REACTIONS (51)
  - Myalgia [None]
  - Headache [None]
  - Fatigue [None]
  - Tic [None]
  - Chest pain [None]
  - Fear [None]
  - Depression [None]
  - Muscle spasms [None]
  - Palpitations [None]
  - Nausea [None]
  - Amnesia [None]
  - Emotional disorder [None]
  - Intrusive thoughts [None]
  - Muscle tightness [None]
  - Back pain [None]
  - Panic attack [None]
  - Disturbance in attention [None]
  - Lethargy [None]
  - Influenza [None]
  - Tremor [None]
  - Dizziness [None]
  - Dry mouth [None]
  - Paraesthesia [None]
  - Abdominal pain [None]
  - Asthenia [None]
  - Blepharospasm [None]
  - Hyperhidrosis [None]
  - Chills [None]
  - Irritability [None]
  - Restlessness [None]
  - Decreased interest [None]
  - Malaise [None]
  - Diarrhoea [None]
  - Skin burning sensation [None]
  - Musculoskeletal pain [None]
  - Agoraphobia [None]
  - Decreased appetite [None]
  - Vomiting [None]
  - Photophobia [None]
  - Hyperacusis [None]
  - Anxiety [None]
  - Tachyphrenia [None]
  - Neck pain [None]
  - Anger [None]
  - Pollakiuria [None]
  - Hypoaesthesia [None]
  - Suicidal ideation [None]
  - Mental disorder [None]
  - Insomnia [None]
  - Social anxiety disorder [None]
  - Pruritus [None]

NARRATIVE: CASE EVENT DATE: 20170706
